FAERS Safety Report 9934249 (Version 1)
Quarter: 2014Q1

REPORT INFORMATION
  Report Type: Report from Study
  Country: US (occurrence: US)
  Receive Date: 20140228
  Receipt Date: 20140228
  Transmission Date: 20141002
  Serious: No
  Sender: FDA-Public Use
  Company Number: US-009507513-1402USA012245

PATIENT
  Age: 37 Year
  Sex: 0

DRUGS (1)
  1. IMPLANON [Suspect]
     Dosage: UNK
     Route: 059
     Dates: start: 201010, end: 20140225

REACTIONS (2)
  - Amenorrhoea [Unknown]
  - Incorrect drug administration duration [Recovered/Resolved]
